FAERS Safety Report 23115389 (Version 1)
Quarter: 2023Q4

REPORT INFORMATION
  Report Type: Spontaneous
  Country: US (occurrence: US)
  Receive Date: 20231027
  Receipt Date: 20231027
  Transmission Date: 20240110
  Serious: Yes (Other)
  Sender: FDA-Public Use
  Company Number: US-SANDOZ-SDZ2023US046502

PATIENT
  Sex: Male

DRUGS (8)
  1. SKYRIZI [Suspect]
     Active Substance: RISANKIZUMAB-RZAA
     Indication: Product used for unknown indication
     Dosage: UNK
     Route: 065
  2. DICLOFENAC DIETHYLAMINE [Suspect]
     Active Substance: DICLOFENAC DIETHYLAMINE
     Indication: Psoriatic arthropathy
     Dosage: 150 MG
     Route: 058
     Dates: start: 20220513
  3. DICLOFENAC DIETHYLAMINE [Suspect]
     Active Substance: DICLOFENAC DIETHYLAMINE
     Indication: Psoriasis
  4. ASPIRIN [Concomitant]
     Active Substance: ASPIRIN
     Indication: Product used for unknown indication
     Dosage: UNK
     Route: 065
  5. LOSARTAN [Concomitant]
     Active Substance: LOSARTAN
     Indication: Arrhythmia
     Dosage: UNK
     Route: 065
  6. METOPROLOL [Concomitant]
     Active Substance: METOPROLOL
     Indication: Blood pressure measurement
     Dosage: 25 MG
     Route: 065
  7. MONTELUKAST [Concomitant]
     Active Substance: MONTELUKAST SODIUM
     Indication: Product used for unknown indication
     Dosage: 10 MG
     Route: 065
  8. PRAVASTATIN [Concomitant]
     Active Substance: PRAVASTATIN
     Indication: Blood triglycerides
     Dosage: 20 MG
     Route: 065

REACTIONS (3)
  - Removal of foreign body from joint [Recovered/Resolved]
  - Colitis microscopic [Unknown]
  - Osteoarthritis [Unknown]
